FAERS Safety Report 4662948-2 (Version None)
Quarter: 2005Q2

REPORT INFORMATION
  Report Type: 
  Country: None (occurrence: None)
  Receive Date: 20050513
  Receipt Date: 20050503
  Transmission Date: 20051028
  Serious: Yes (Other)
  Sender: FDA-Public Use
  Company Number: 2005AP000416

PATIENT
  Age: 77 Year
  Sex: Male

DRUGS (3)
  1. FLUOXETINE HYDROCHLORIDE [Suspect]
     Dosage: 40 MG; QD
  2. MODAFINIL [Concomitant]
  3. SILDENAFIL CITRATE [Concomitant]

REACTIONS (7)
  - BRUXISM [None]
  - DYSKINESIA [None]
  - DYSTONIA [None]
  - PAIN IN JAW [None]
  - PARKINSONISM [None]
  - SPEECH DISORDER [None]
  - TARDIVE DYSKINESIA [None]
